FAERS Safety Report 8784370 (Version 2)
Quarter: 2012Q4

REPORT INFORMATION
  Report Type: 
  Country: US (occurrence: US)
  Receive Date: 20120913
  Receipt Date: 20121008
  Transmission Date: 20130627
  Serious: No
  Sender: FDA-Public Use
  Company Number: US-ASTRAZENECA-2012SE57916

PATIENT
  Age: 63 Year
  Sex: Male

DRUGS (13)
  1. SYMBICORT PMDI [Suspect]
     Indication: CHRONIC OBSTRUCTIVE PULMONARY DISEASE
     Dosage: 160 UG TWICE DAILY
     Route: 055
     Dates: start: 201205
  2. SYMBICORT PMDI [Suspect]
     Indication: CHRONIC OBSTRUCTIVE PULMONARY DISEASE
     Dosage: 160/4.5 MCG TWO PUFFS BID
     Route: 055
  3. FLUOXEPINE [Concomitant]
  4. PROPRANOLOL [Concomitant]
  5. NASONEX [Concomitant]
     Dosage: 2 SPRAYS PER NOSTRIL DAILY
     Route: 045
  6. TAMSULOSIN [Concomitant]
  7. XANAX [Concomitant]
  8. NORCO [Concomitant]
     Dosage: AS REQUIRED
  9. FOLIC ACID [Concomitant]
  10. VITAMIN D [Concomitant]
     Dosage: 5000 UNITS EVERY TWO WEEKS
  11. PROVENTIL HFA [Concomitant]
     Dosage: 1-2 PUFFS AS REQUIRED
  12. XANAFLEX [Concomitant]
  13. LEXAPRO [Concomitant]

REACTIONS (3)
  - Cough [Recovered/Resolved]
  - Drug ineffective [Recovered/Resolved]
  - Intentional drug misuse [Recovered/Resolved]
